FAERS Safety Report 4398756-X (Version None)
Quarter: 2004Q3

REPORT INFORMATION
  Report Type: 
  Country: None (occurrence: None)
  Receive Date: 20040712
  Receipt Date: 20040629
  Transmission Date: 20050211
  Serious: No
  Sender: FDA-Public Use
  Company Number: DE-2004-027202

PATIENT
  Age: 35 Year
  Sex: Female

DRUGS (1)
  1. MIRENA [Suspect]
     Indication: MENORRHAGIA
     Dosage: 20 UG/DAY, CONT, INTRA-UTERINE
     Route: 015
     Dates: start: 20001101, end: 20040101

REACTIONS (3)
  - DYSFUNCTIONAL UTERINE BLEEDING [None]
  - MENORRHAGIA [None]
  - UTERINE LEIOMYOMA [None]
